FAERS Safety Report 16844369 (Version 1)
Quarter: 2019Q3

REPORT INFORMATION
  Report Type: Spontaneous
  Country: US (occurrence: US)
  Receive Date: 20190924
  Receipt Date: 20190924
  Transmission Date: 20191005
  Serious: No
  Sender: FDA-Public Use
  Company Number: US-ALLERGAN-1842235US

PATIENT
  Age: 23 Year
  Sex: Female

DRUGS (4)
  1. LAMICTAL [Concomitant]
     Active Substance: LAMOTRIGINE
     Dosage: UNK
     Route: 048
  2. SAPHRIS [Suspect]
     Active Substance: ASENAPINE MALEATE
     Dosage: ACTUAL: HALF A PILL
     Route: 048
     Dates: start: 201808
  3. SAPHRIS [Suspect]
     Active Substance: ASENAPINE MALEATE
     Indication: BORDERLINE PERSONALITY DISORDER
     Dosage: ACTUAL: HALF A PILL
     Route: 048
     Dates: start: 2018
  4. SAPHRIS [Suspect]
     Active Substance: ASENAPINE MALEATE
     Indication: BIPOLAR DISORDER
     Dosage: ACTUAL: HALF A QUARTER
     Route: 048
     Dates: start: 2018, end: 2018

REACTIONS (3)
  - Nausea [Recovered/Resolved]
  - Wrong technique in product usage process [Unknown]
  - Off label use [Unknown]

NARRATIVE: CASE EVENT DATE: 201808
